FAERS Safety Report 8525059-1 (Version None)
Quarter: 2012Q3

REPORT INFORMATION
  Report Type: 
  Country: None (occurrence: None)
  Receive Date: 20120720
  Receipt Date: 20120609
  Transmission Date: 20120928
  Serious: Yes (Hospitalization, Other)
  Sender: FDA-Public Use
  Company Number: TR-ROCHE-1079477

PATIENT
  Sex: Male

DRUGS (1)
  1. XOLAIR [Suspect]
     Indication: ASTHMA
     Dates: start: 20090119

REACTIONS (5)
  - NASAL CONGESTION [None]
  - DISCOMFORT [None]
  - MENISCUS LESION [None]
  - HYPERSENSITIVITY [None]
  - SNEEZING [None]
